FAERS Safety Report 5674173-7 (Version None)
Quarter: 2008Q1

REPORT INFORMATION
  Report Type: 
  Country: None (occurrence: None)
  Receive Date: 20080320
  Receipt Date: 20080312
  Transmission Date: 20080703
  Serious: Yes (Hospitalization, Other)
  Sender: FDA-Public Use
  Company Number: PHBS2008NL02569

PATIENT
  Age: 60 Year
  Sex: Male

DRUGS (5)
  1. EXJADE [Suspect]
     Indication: SERUM FERRITIN INCREASED
     Dosage: 1500 MG/D
     Dates: start: 20071128, end: 20080107
  2. EXJADE [Suspect]
     Dosage: 1000 MG/D
     Route: 065
     Dates: start: 20080108, end: 20080210
  3. THALIDOMIDE [Suspect]
     Dosage: UNK, UNK
     Dates: start: 20071128, end: 20080210
  4. PREDNISONE TAB [Concomitant]
     Dates: start: 20071128
  5. BLOOD TRANSFUSION, AUXILIARY PRODUCTS [Concomitant]

REACTIONS (4)
  - COUGH [None]
  - DYSPNOEA [None]
  - INTERSTITIAL LUNG DISEASE [None]
  - RENAL IMPAIRMENT [None]
